FAERS Safety Report 14499381 (Version 2)
Quarter: 2018Q1

REPORT INFORMATION
  Report Type: Spontaneous
  Country: SE (occurrence: SE)
  Receive Date: 20180207
  Receipt Date: 20180314
  Transmission Date: 20180509
  Serious: Yes (Other)
  Sender: FDA-Public Use
  Company Number: SE-GEHC-2018CSU000595

PATIENT

DRUGS (24)
  1. GLYTRIN [Concomitant]
     Indication: ANGINA PECTORIS
     Dosage: 0.4 MG, PRN
     Dates: start: 20130213
  2. XYLOCAINE [Concomitant]
     Active Substance: LIDOCAINE HYDROCHLORIDE
     Dosage: 10 MG, UNK
     Dates: start: 201402
  3. INNOHEP [Concomitant]
     Active Substance: TINZAPARIN SODIUM
     Indication: PROPHYLAXIS
     Dosage: 2500 IU, UNK
     Route: 058
  4. MEROPENEM. [Concomitant]
     Active Substance: MEROPENEM
     Dosage: 2000 MG, UNK
     Route: 042
     Dates: start: 201402
  5. PANODIL [Concomitant]
     Active Substance: ACETAMINOPHEN
     Indication: PAIN
     Dosage: 500 MG, PRN
     Dates: start: 20121004
  6. LEVETIRACETAM. [Concomitant]
     Active Substance: LEVETIRACETAM
     Dosage: 500 MG, UNK
     Dates: start: 201402
  7. BETAMETHASONE. [Concomitant]
     Active Substance: BETAMETHASONE
     Dosage: 4 MG, UNK
     Route: 042
     Dates: start: 201402
  8. FOLACIN                            /00024201/ [Concomitant]
     Active Substance: FOLIC ACID
     Dosage: 5 MG, QD
     Dates: start: 20130213, end: 20130213
  9. FURIX [Concomitant]
     Active Substance: FUROSEMIDE
     Indication: DIURETIC THERAPY
     Dosage: 500 MG, SINGLE
     Dates: start: 20130206, end: 20130206
  10. FUROSEMIDE. [Concomitant]
     Active Substance: FUROSEMIDE
     Dosage: 40 MG, UNK
     Route: 042
     Dates: start: 201402
  11. LORAZEPAM. [Concomitant]
     Active Substance: LORAZEPAM
     Dosage: 4 MG, UNK
     Route: 042
     Dates: start: 2014
  12. NITROGLYCERIN. [Concomitant]
     Active Substance: NITROGLYCERIN
     Dosage: UNK, SINGLE
     Dates: start: 201402
  13. NEXIUM [Concomitant]
     Active Substance: ESOMEPRAZOLE MAGNESIUM
     Indication: GASTRITIS
     Dosage: 40 MG, QD
     Dates: start: 20130213
  14. CITODON                            /00116401/ [Concomitant]
     Active Substance: ACETAMINOPHEN\CODEINE PHOSPHATE
     Indication: PAIN
     Dosage: 30 MG, PRN
     Dates: start: 20130205
  15. VISIPAQUE [Suspect]
     Active Substance: IODIXANOL
     Indication: ANGINA PECTORIS
     Dosage: 130 ML, SINGLE
     Route: 013
     Dates: start: 20140205, end: 20140205
  16. ISOSORBIDMONONITRAT 1A PHARMA GMBH [Concomitant]
     Indication: MYOCARDIAL ISCHAEMIA
     Dosage: 60 MG, SINGLE
     Dates: start: 20130213, end: 20130213
  17. TROMBYL [Concomitant]
     Active Substance: ASPIRIN
     Indication: PROPHYLAXIS
     Dosage: 75 MG, QD
     Dates: start: 20130213
  18. DIAZEPAM. [Concomitant]
     Active Substance: DIAZEPAM
     Dosage: 5 MG, UNK
     Route: 042
     Dates: start: 201402
  19. MORPHINE [Concomitant]
     Active Substance: MORPHINE
     Dosage: 1 MG, UNK
     Route: 042
     Dates: start: 201402
  20. LEVETIRACETAM. [Concomitant]
     Active Substance: LEVETIRACETAM
     Dosage: 500 MG, BID
     Dates: start: 20140205
  21. ACYCLOVIR                          /00587301/ [Concomitant]
     Active Substance: ACYCLOVIR
     Dosage: 150 MG, UNK
     Dates: start: 201402
  22. BEHEPAN                            /00056201/ [Concomitant]
     Active Substance: CYANOCOBALAMIN
     Dosage: 1 MG, SINGLE
     Dates: start: 20130213
  23. NOVORAPID [Concomitant]
     Active Substance: INSULIN ASPART
     Indication: HYPERGLYCAEMIA
     Dosage: 4 IU, UNK
     Dates: start: 201402
  24. ALLOPURINOL. [Concomitant]
     Active Substance: ALLOPURINOL
     Indication: GOUT
     Dosage: 50 MG, QD
     Dates: start: 20120924, end: 20120924

REACTIONS (1)
  - Contrast encephalopathy [Recovered/Resolved]

NARRATIVE: CASE EVENT DATE: 20140206
